FAERS Safety Report 24252434 (Version 1)
Quarter: 2024Q3

REPORT INFORMATION
  Report Type: Spontaneous
  Country: US (occurrence: US)
  Receive Date: 20240827
  Receipt Date: 20240827
  Transmission Date: 20241017
  Serious: No
  Sender: ACCORD
  Company Number: US-Accord-377184

PATIENT
  Sex: Male

DRUGS (1)
  1. BICALUTAMIDE [Suspect]
     Active Substance: BICALUTAMIDE
     Indication: Product used for unknown indication
     Dates: start: 20230824

REACTIONS (2)
  - Agitation [Unknown]
  - Product packaging quantity issue [Unknown]
